FAERS Safety Report 10190873 (Version 1)
Quarter: 2014Q2

REPORT INFORMATION
  Report Type: Spontaneous
  Country: US (occurrence: None)
  Receive Date: 20140521
  Receipt Date: 20140521
  Transmission Date: 20141212
  Serious: Yes (Disabling, Other)
  Sender: FDA-Public Use
  Company Number: None

PATIENT
  Age: 48 Year
  Sex: Male
  Weight: 75.3 kg

DRUGS (1)
  1. CIPROFLOXACIN 500 MG [Suspect]
     Indication: PROSTATITIS
     Dosage: 1 PILLS, TWICE DAILY, TAKEN BY MOUTH
     Route: 048
     Dates: start: 20140427, end: 20140520

REACTIONS (19)
  - Musculoskeletal stiffness [None]
  - Throat tightness [None]
  - Vision blurred [None]
  - Visual acuity reduced [None]
  - Dyspepsia [None]
  - Abdominal distension [None]
  - Ocular icterus [None]
  - Chromaturia [None]
  - Mood swings [None]
  - Confusional state [None]
  - Hallucination [None]
  - Depression [None]
  - Thinking abnormal [None]
  - Abnormal behaviour [None]
  - Skin discolouration [None]
  - Photophobia [None]
  - Decreased appetite [None]
  - Headache [None]
  - Neck pain [None]
